FAERS Safety Report 10486644 (Version 1)
Quarter: 2014Q4

REPORT INFORMATION
  Report Type: Spontaneous
  Country: US (occurrence: US)
  Receive Date: 20141001
  Receipt Date: 20141001
  Transmission Date: 20150528
  Serious: No
  Sender: FDA-Public Use
  Company Number: US-KOWA-2014S1000931

PATIENT
  Age: 90 Year
  Sex: Female

DRUGS (6)
  1. ISOSORBIDE [Concomitant]
     Active Substance: ISOSORBIDE
     Indication: BLOOD PRESSURE
  2. LOSARTAN [Concomitant]
     Active Substance: LOSARTAN
     Indication: BLOOD PRESSURE
  3. FUROSEMIDE. [Concomitant]
     Active Substance: FUROSEMIDE
  4. LIVALO [Suspect]
     Active Substance: PITAVASTATIN CALCIUM
     Indication: BLOOD PRESSURE
     Route: 048
     Dates: start: 2014, end: 201406
  5. METOPROLOL [Concomitant]
     Active Substance: METOPROLOL
     Indication: BLOOD PRESSURE
  6. AMLODIPINE [Concomitant]
     Active Substance: AMLODIPINE BESYLATE
     Indication: BLOOD PRESSURE
     Route: 048

REACTIONS (3)
  - Swelling [Recovering/Resolving]
  - Hypokinesia [Not Recovered/Not Resolved]
  - Musculoskeletal discomfort [Recovering/Resolving]
